FAERS Safety Report 18511904 (Version 1)
Quarter: 2020Q4

REPORT INFORMATION
  Report Type: Spontaneous
  Country: US (occurrence: US)
  Receive Date: 20201117
  Receipt Date: 20201117
  Transmission Date: 20210114
  Serious: Yes (Hospitalization)
  Sender: FDA-Public Use
  Company Number: None

PATIENT
  Age: 41 Year
  Sex: Female

DRUGS (13)
  1. OMERPRAZOLE, ONETOUCH, PANTOPRAZOLE, PAZEO [Concomitant]
  2. TOPIRMATE, TROSPIUM [Concomitant]
  3. AMITIRPTYLIN, AMLODIPINE, AZELASTINE [Concomitant]
  4. BD SWAB, CERTIRIZINE, [Concomitant]
  5. DOK, DULERA, FAMOTDINE [Concomitant]
  6. PEN NEEDLES, PREGABLIN, SINNA [Concomitant]
  7. TRULANCE, VITAMIN E [Concomitant]
  8. OZEMPIC [Suspect]
     Active Substance: SEMAGLUTIDE
     Indication: PRODUCT USED FOR UNKNOWN INDICATION
     Dosage: ?          OTHER FREQUENCY:WEEKLY;?
     Route: 058
     Dates: start: 20200722
  9. FLUXOETINE, FOLIC ACID, HYDROCO/APAP [Concomitant]
  10. LEVOFLOXACIN, MELOXICAM, METHOCARBM [Concomitant]
  11. MONTELUKAST, MORPHINE, MYTRBETRIQ [Concomitant]
  12. ACETAMINOPHE, ACYCLOVIR [Concomitant]
  13. IBUPROFEN, IPRATROPIUM, LEVOCETIRIZI [Concomitant]

REACTIONS (1)
  - Spinal operation [None]

NARRATIVE: CASE EVENT DATE: 20200930
